FAERS Safety Report 6517829-6 (Version None)
Quarter: 2009Q4

REPORT INFORMATION
  Report Type: 
  Country: None (occurrence: None)
  Receive Date: 20091224
  Receipt Date: 20091217
  Transmission Date: 20100525
  Serious: Yes (Other)
  Sender: FDA-Public Use
  Company Number: PHHO2009GB15683

PATIENT
  Age: 51 Year
  Sex: Female

DRUGS (7)
  1. ZOLEDRONATE T29581+SOLINJ+BM [Suspect]
     Indication: METASTASES TO BONE
     Dosage: 4 MG, UNK
     Route: 042
     Dates: start: 20040921, end: 20080314
  2. ZOLEDRONATE T29581+SOLINJ+BM [Suspect]
     Dosage: NO TREATMENT
     Dates: start: 20080315
  3. ZOLEDRONIC ACID [Suspect]
     Indication: METASTASES TO BONE
     Dosage: UNK
     Route: 042
     Dates: start: 20090116, end: 20090511
  4. CLODRONATE DISODIUM [Suspect]
     Dosage: UNK
     Dates: start: 20090918
  5. VITAMIN D [Concomitant]
  6. CALCIUM [Concomitant]
  7. AVASTIN [Concomitant]
     Dosage: UNK

REACTIONS (4)
  - METASTASIS [None]
  - NAUSEA [None]
  - OSTEONECROSIS [None]
  - TOOTH EXTRACTION [None]
